FAERS Safety Report 19882749 (Version 2)
Quarter: 2022Q3

REPORT INFORMATION
  Report Type: Spontaneous
  Country: US (occurrence: US)
  Receive Date: 20210924
  Receipt Date: 20220730
  Transmission Date: 20221026
  Serious: No
  Sender: FDA-Public Use
  Company Number: US-SANOFI-00777181

PATIENT
  Age: 63 Year
  Sex: Female

DRUGS (2)
  1. DUPIXENT [Suspect]
     Active Substance: DUPILUMAB
     Indication: Dermatitis atopic
     Dosage: 300 MG, QOW
     Dates: start: 202107
  2. DUPIXENT [Suspect]
     Active Substance: DUPILUMAB
     Indication: Pruritus
     Dosage: 300 MG
     Route: 058
     Dates: start: 202201

REACTIONS (5)
  - Dermatitis atopic [Unknown]
  - Skin irritation [Unknown]
  - Erythema [Unknown]
  - Limb discomfort [Unknown]
  - Off label use [Unknown]

NARRATIVE: CASE EVENT DATE: 20210701
